FAERS Safety Report 18037401 (Version 2)
Quarter: 2020Q4

REPORT INFORMATION
  Report Type: Spontaneous
  Country: US (occurrence: US)
  Receive Date: 20200717
  Receipt Date: 20201214
  Transmission Date: 20210113
  Serious: Yes (Hospitalization, Disabling, Other)
  Sender: FDA-Public Use
  Company Number: US-SA-2020SA179323

PATIENT

DRUGS (1)
  1. ZANTAC 75 [Suspect]
     Active Substance: RANITIDINE HYDROCHLORIDE
     Indication: DYSPEPSIA
     Dosage: UNK UNK, QIW
     Dates: start: 200906, end: 201911

REACTIONS (12)
  - Anxiety [Unknown]
  - Pancreatic carcinoma [Unknown]
  - Loss of personal independence in daily activities [Unknown]
  - Anhedonia [Unknown]
  - Impaired work ability [Unknown]
  - Disease risk factor [Unknown]
  - Depressed mood [Unknown]
  - Emotional distress [Unknown]
  - Disability [Unknown]
  - Mental disorder [Unknown]
  - Pain [Unknown]
  - Injury [Unknown]

NARRATIVE: CASE EVENT DATE: 2017
